FAERS Safety Report 18468154 (Version 1)
Quarter: 2020Q4

REPORT INFORMATION
  Report Type: Spontaneous
  Country: US (occurrence: US)
  Receive Date: 20201104
  Receipt Date: 20201104
  Transmission Date: 20210114
  Serious: Yes (Hospitalization)
  Sender: FDA-Public Use
  Company Number: None

PATIENT
  Age: 37 Year
  Sex: Female
  Weight: 121.5 kg

DRUGS (2)
  1. XOLAIR [Suspect]
     Active Substance: OMALIZUMAB
     Indication: IDIOPATHIC URTICARIA
     Dosage: ?          OTHER FREQUENCY:SQ Q 4 WEEKS;?
     Route: 058
     Dates: start: 20200527, end: 20201021
  2. XOLAIR [Concomitant]
     Active Substance: OMALIZUMAB
     Dates: start: 20200524, end: 20201021

REACTIONS (4)
  - Rash [None]
  - Dyspnoea [None]
  - Urticaria [None]
  - Lip swelling [None]

NARRATIVE: CASE EVENT DATE: 20201021
